FAERS Safety Report 7574489-3 (Version None)
Quarter: 2011Q2

REPORT INFORMATION
  Report Type: 
  Country: None (occurrence: None)
  Receive Date: 20110627
  Receipt Date: 20110622
  Transmission Date: 20111010
  Serious: Yes (Life-Threatening)
  Sender: FDA-Public Use
  Company Number: JP-ASTRAZENECA-2011SE37740

PATIENT
  Age: 63 Year
  Sex: Male
  Weight: 69 kg

DRUGS (9)
  1. ROPIVACAINE HYDROCHLORIDE [Suspect]
     Indication: NERVE BLOCK
     Route: 053
  2. FENTANYL CITRATE [Concomitant]
     Indication: INDUCTION OF ANAESTHESIA
     Route: 042
  3. PROPOFOL [Concomitant]
     Indication: MAINTENANCE OF ANAESTHESIA
     Dosage: TCI/TARGET LEVEL 3 MCG/ML
     Route: 042
  4. PROPOFOL [Concomitant]
     Indication: INDUCTION OF ANAESTHESIA
     Dosage: TCI/TARGET LEVEL 3 MCG/ML
     Route: 042
  5. PROPOFOL [Concomitant]
     Dosage: TCI 2.5-3.0 MCG/ML
     Route: 042
  6. PROPOFOL [Concomitant]
     Dosage: TCI 2.5-3.0 MCG/ML
     Route: 042
  7. XYLOCAINE W/ EPINEPHRINE [Suspect]
     Indication: EPIDURAL ANAESTHESIA
     Route: 008
  8. DIAZEPAM [Concomitant]
     Indication: ANAESTHETIC PREMEDICATION
     Route: 048
  9. VECURONIUM BROMIDE [Concomitant]
     Indication: HYPOTONIA
     Route: 065

REACTIONS (2)
  - VENTRICULAR FIBRILLATION [None]
  - ARTERIOSPASM CORONARY [None]
